FAERS Safety Report 4345109-6 (Version None)
Quarter: 2004Q2

REPORT INFORMATION
  Report Type: 
  Country: None (occurrence: None)
  Receive Date: 20040420
  Receipt Date: 20040407
  Transmission Date: 20050107
  Serious: Yes (Other)
  Sender: FDA-Public Use
  Company Number: 200411507BCC

PATIENT
  Age: 61 Year
  Sex: Female
  Weight: 71.6683 kg

DRUGS (13)
  1. ALEVE [Suspect]
     Indication: ARTHRITIS
     Dosage: 220 MG, BID, ORAL
     Route: 048
     Dates: start: 20040201, end: 20040322
  2. ALEVE [Suspect]
     Indication: PAIN
     Dosage: 220 MG, BID, ORAL
     Route: 048
     Dates: start: 20040201, end: 20040322
  3. ENTOCORT EC [Concomitant]
  4. ZOLOFT [Concomitant]
  5. NORVASC [Concomitant]
  6. PREMARIN [Concomitant]
  7. LIPITOR [Concomitant]
  8. LOPID [Concomitant]
  9. OXYCONTIN [Concomitant]
  10. NASONEX [Concomitant]
  11. VITAMIN E [Concomitant]
  12. MULTI-VITAMIN [Concomitant]
  13. METHOTREXATE [Concomitant]

REACTIONS (13)
  - ABDOMINAL PAIN [None]
  - ARTHRITIS [None]
  - CONDITION AGGRAVATED [None]
  - CROHN'S DISEASE [None]
  - DEPRESSION [None]
  - EMOTIONAL DISTRESS [None]
  - EXCORIATION [None]
  - FAECAL VOLUME DECREASED [None]
  - GASTRO-INTESTINAL FISTULA [None]
  - INSOMNIA [None]
  - PAIN [None]
  - STRESS SYMPTOMS [None]
  - SUICIDAL IDEATION [None]
